FAERS Safety Report 24729022 (Version 2)
Quarter: 2025Q3

REPORT INFORMATION
  Report Type: Report from Study
  Country: CA (occurrence: CA)
  Receive Date: 20241213
  Receipt Date: 20250810
  Transmission Date: 20251021
  Serious: Yes (Hospitalization, Other)
  Sender: ALEXION PHARMACEUTICALS
  Company Number: CA-AstraZeneca-CH-00762620A

PATIENT
  Sex: Female

DRUGS (3)
  1. CAPIVASERTIB [Suspect]
     Active Substance: CAPIVASERTIB
     Indication: Breast cancer metastatic
     Dates: start: 20240916
  2. ENOXAPARIN SODIUM [Concomitant]
     Active Substance: ENOXAPARIN SODIUM
     Dosage: 100 MILLIGRAM, QD
  3. DIGOXIN [Concomitant]
     Active Substance: DIGOXIN
     Dosage: 0.125 MILLIGRAM, QD

REACTIONS (2)
  - Pulmonary embolism [Recovered/Resolved]
  - Atrial fibrillation [Recovered/Resolved]
